FAERS Safety Report 4320566-X (Version None)
Quarter: 2004Q1

REPORT INFORMATION
  Report Type: 
  Country: None (occurrence: None)
  Receive Date: 20040319
  Receipt Date: 20040319
  Transmission Date: 20041129
  Serious: Yes (Other)
  Sender: FDA-Public Use
  Company Number: None

PATIENT
  Sex: Male
  Weight: 63.5036 kg

DRUGS (1)
  1. CEFAZOLIN [Suspect]
     Indication: POSTOPERATIVE INFECTION
     Dosage: 1 GM IV Q 8 H
     Route: 042
     Dates: start: 20040317, end: 20040318

REACTIONS (1)
  - RASH GENERALISED [None]
